FAERS Safety Report 10430858 (Version 1)
Quarter: 2014Q1

REPORT INFORMATION
  Report Type: Spontaneous
  Country: US (occurrence: None)
  Receive Date: 20140228
  Receipt Date: 20140228
  Transmission Date: 20141002
  Serious: Yes (Other)
  Sender: FDA-Public Use
  Company Number: 20140021L

PATIENT
  Age: 51 Year
  Sex: Female
  Weight: 63.96 kg

DRUGS (1)
  1. INJECTAFER [Suspect]
     Indication: IRON DEFICIENCY ANAEMIA
     Dates: start: 20131219, end: 20131219

REACTIONS (1)
  - Hypersensitivity [None]
